FAERS Safety Report 4972228-3 (Version None)
Quarter: 2006Q2

REPORT INFORMATION
  Report Type: 
  Country: None (occurrence: None)
  Receive Date: 20060413
  Receipt Date: 20060407
  Transmission Date: 20061013
  Serious: Yes (Hospitalization)
  Sender: FDA-Public Use
  Company Number: FR-GLAXOSMITHKLINE-B0420157A

PATIENT
  Age: 83 Year
  Sex: Male

DRUGS (5)
  1. AUGMENTIN '125' [Suspect]
     Dosage: 1G THREE TIMES PER DAY
     Route: 048
     Dates: start: 20060313, end: 20060320
  2. LASILIX [Suspect]
     Route: 048
     Dates: start: 20060313, end: 20060321
  3. ZECLAR [Suspect]
     Dosage: 500MG TWICE PER DAY
     Route: 048
     Dates: start: 20060306, end: 20060320
  4. PREVISCAN [Concomitant]
     Dates: end: 20060321
  5. CORDARONE [Concomitant]
     Dates: end: 20060321

REACTIONS (4)
  - ACUTE GENERALISED EXANTHEMATOUS PUSTULOSIS [None]
  - C-REACTIVE PROTEIN INCREASED [None]
  - LEUKOCYTOSIS [None]
  - RASH PUSTULAR [None]
